FAERS Safety Report 5499966-0 (Version None)
Quarter: 2007Q4

REPORT INFORMATION
  Report Type: 
  Country: None (occurrence: None)
  Receive Date: 20071026
  Receipt Date: 20071016
  Transmission Date: 20080405
  Serious: Yes (Other)
  Sender: FDA-Public Use
  Company Number: US-PFIZER INC-2007087576

PATIENT
  Sex: Female
  Weight: 76.2 kg

DRUGS (16)
  1. ZOLOFT [Suspect]
     Indication: STRESS
  2. CHANTIX [Suspect]
     Indication: SMOKING CESSATION THERAPY
  3. XANAX [Suspect]
     Indication: INSOMNIA
     Dosage: TEXT:0.25MG
  4. NICOTINE [Suspect]
     Indication: SMOKING CESSATION THERAPY
  5. CO-Q-10 [Concomitant]
  6. PREMARIN [Concomitant]
  7. METFORMIN [Concomitant]
  8. DILTIAZEM [Concomitant]
  9. CLONIDINE [Concomitant]
  10. LISINOPRIL [Concomitant]
  11. HYDROCHLOROTHIAZIDE [Concomitant]
  12. VITAMIN CAP [Concomitant]
  13. CRESTOR [Concomitant]
  14. XALATAN [Concomitant]
  15. ACETYLSALICYLIC ACID SRT [Concomitant]
  16. SPIRIVA [Concomitant]

REACTIONS (12)
  - CHRONIC OBSTRUCTIVE PULMONARY DISEASE [None]
  - DEVICE FAILURE [None]
  - DIABETES MELLITUS [None]
  - DIVERTICULITIS [None]
  - DRUG INEFFECTIVE [None]
  - EXOSTOSIS [None]
  - EYE DISORDER [None]
  - FLATULENCE [None]
  - INSOMNIA [None]
  - NIGHTMARE [None]
  - TENOSYNOVITIS [None]
  - UTERINE LEIOMYOMA [None]
